FAERS Safety Report 9037737 (Version 2)
Quarter: 2013Q2

REPORT INFORMATION
  Report Type: Other
  Country: US (occurrence: US)
  Receive Date: 20130129
  Receipt Date: 20130513
  Transmission Date: 20140414
  Serious: Yes (Life-Threatening)
  Sender: FDA-Public Use
  Company Number: US-SHIRE-ALL1-2013-00433

PATIENT
  Age: 70 Year
  Sex: Female

DRUGS (1)
  1. FIRAZYR [Suspect]
     Indication: HEREDITARY ANGIOEDEMA
     Dosage: 30 MG, AS REQ^D (30 MG PRN SWELLING)
     Route: 058
     Dates: start: 20120731

REACTIONS (2)
  - Local swelling [Unknown]
  - Localised oedema [Unknown]
